FAERS Safety Report 20013473 (Version 1)
Quarter: 2021Q4

REPORT INFORMATION
  Report Type: Report from Study
  Country: US (occurrence: US)
  Receive Date: 20211029
  Receipt Date: 20211029
  Transmission Date: 20220303
  Serious: No
  Sender: FDA-Public Use
  Company Number: US-NOVARTISTESTPH-NVSC2021US247133

PATIENT
  Age: 70 Year
  Sex: Male

DRUGS (1)
  1. ENTRESTO [Suspect]
     Active Substance: SACUBITRIL\VALSARTAN
     Indication: Cardiac failure
     Dosage: 1 DF, BID (24.26 MG)
     Route: 048
     Dates: start: 20210217

REACTIONS (5)
  - Gait disturbance [Unknown]
  - Echocardiogram normal [Recovered/Resolved]
  - Ejection fraction normal [Recovered/Resolved]
  - Joint injury [Unknown]
  - Therapeutic response unexpected [Unknown]

NARRATIVE: CASE EVENT DATE: 20210217
